FAERS Safety Report 18120696 (Version 1)
Quarter: 2020Q3

REPORT INFORMATION
  Report Type: Spontaneous
  Country: US (occurrence: US)
  Receive Date: 20200806
  Receipt Date: 20200806
  Transmission Date: 20201103
  Serious: Yes (Life-Threatening, Disabling, Other)
  Sender: FDA-Public Use
  Company Number: US-PURDUE-USA-2020-0160625

PATIENT
  Sex: Male

DRUGS (1)
  1. OXYCONTIN [Suspect]
     Active Substance: OXYCODONE HYDROCHLORIDE
     Indication: BACK PAIN
     Dosage: 80 MG, TID
     Route: 048
     Dates: end: 201412

REACTIONS (9)
  - Pneumonia [Recovered/Resolved with Sequelae]
  - Coma [Unknown]
  - Drug dependence [Unknown]
  - Overdose [Unknown]
  - Hallucination [Unknown]
  - Unevaluable event [Unknown]
  - Nightmare [Unknown]
  - Impaired reasoning [Unknown]
  - Walking disability [Recovered/Resolved]

NARRATIVE: CASE EVENT DATE: 201412
